FAERS Safety Report 10086240 (Version 2)
Quarter: 2014Q2

REPORT INFORMATION
  Report Type: Spontaneous
  Country: CL (occurrence: CL)
  Receive Date: 20140418
  Receipt Date: 20140418
  Transmission Date: 20141212
  Serious: Yes (Hospitalization)
  Sender: FDA-Public Use
  Company Number: PHHY2014CL044552

PATIENT
  Age: 28 Year
  Sex: Male

DRUGS (8)
  1. CICLOSPORIN [Suspect]
     Indication: IMMUNOSUPPRESSION
  2. MYCOPHENOLATE MOFETIL [Suspect]
     Indication: RENAL TRANSPLANT
     Dosage: 2000 MG, PER DAY
  3. TACROLIMUS [Suspect]
  4. CEFTRIAXONE [Concomitant]
  5. CIPROFLOXACIN [Concomitant]
     Indication: INFECTION
  6. METRONIDAZOLE [Concomitant]
     Indication: INFECTION
  7. CORTICOSTEROIDS [Concomitant]
     Indication: RENAL TRANSPLANT
  8. PREDNISONE [Concomitant]
     Dosage: 10 MG, PER DAY

REACTIONS (27)
  - Histiocytosis haematophagic [Unknown]
  - Diarrhoea [Recovered/Resolved]
  - Vomiting [Unknown]
  - Thrombophlebitis [Unknown]
  - Headache [Unknown]
  - Abdominal pain [Unknown]
  - Splenomegaly [Unknown]
  - Pleural effusion [Unknown]
  - Ascites [Unknown]
  - C-reactive protein increased [Recovered/Resolved]
  - Hypoalbuminaemia [Unknown]
  - Blood creatinine increased [Recovered/Resolved]
  - Azotaemia [Unknown]
  - Pyrexia [Recovered/Resolved]
  - Leukopenia [Recovered/Resolved]
  - Thrombocytopenia [Unknown]
  - Bone marrow failure [Unknown]
  - Hypogammaglobulinaemia [Unknown]
  - Weight decreased [Unknown]
  - Anaemia [Unknown]
  - Lymphocele [Unknown]
  - Kidney transplant rejection [Recovering/Resolving]
  - Muscle spasms [Unknown]
  - Arteriosclerosis [Unknown]
  - Pain [Unknown]
  - Urine output decreased [Unknown]
  - Metabolic acidosis [Unknown]
